FAERS Safety Report 5485310-1 (Version None)
Quarter: 2007Q4

REPORT INFORMATION
  Report Type: 
  Country: None (occurrence: None)
  Receive Date: 20071010
  Receipt Date: 20071010
  Transmission Date: 20080405
  Serious: Yes (Hospitalization)
  Sender: FDA-Public Use
  Company Number: None

PATIENT
  Sex: Female
  Weight: 61.36 kg

DRUGS (1)
  1. TOPOTECAN [Suspect]
     Dosage: 1.2 MG

REACTIONS (1)
  - NEUTROPENIA [None]
